FAERS Safety Report 9279293 (Version 1)
Quarter: 2013Q2

REPORT INFORMATION
  Report Type: Spontaneous
  Country: US (occurrence: US)
  Receive Date: 20130508
  Receipt Date: 20130508
  Transmission Date: 20140414
  Serious: No
  Sender: FDA-Public Use
  Company Number: US-ASTRAZENECA-2013SE24974

PATIENT
  Age: 78 Year
  Sex: Female
  Weight: 79.4 kg

DRUGS (10)
  1. FASLODEX [Suspect]
     Indication: BREAST CANCER METASTATIC
     Route: 030
     Dates: start: 2012
  2. PRILOSEC OTC [Suspect]
     Indication: GASTROOESOPHAGEAL REFLUX DISEASE
     Dosage: PRN
     Route: 048
  3. WARAFIN [Concomitant]
     Indication: THROMBOSIS
     Route: 048
     Dates: start: 2005
  4. SYNTHROID [Concomitant]
     Indication: THYROID DISORDER
     Route: 048
  5. AMLODIPINE BESYLATE [Concomitant]
     Indication: HYPERTENSION
     Route: 048
  6. NOVALOG [Concomitant]
     Indication: DIABETES MELLITUS
     Dosage: 70/30, SLIDING SCALE DAILY
     Route: 058
  7. CLONIDINE HCI [Concomitant]
     Indication: BLOOD PRESSURE ABNORMAL
     Route: 048
  8. MULTIVITS [Concomitant]
     Indication: VITAMIN SUPPLEMENTATION
     Dosage: DAILY
     Route: 048
  9. OCCUVIT [Concomitant]
     Indication: SUPPLEMENTATION THERAPY
     Dosage: DAILY
     Route: 048
  10. COD LIVER OIL [Concomitant]
     Indication: SUPPLEMENTATION THERAPY
     Dosage: DAILY
     Route: 048

REACTIONS (7)
  - Gait disturbance [Unknown]
  - Feeling abnormal [Unknown]
  - Musculoskeletal stiffness [Unknown]
  - Movement disorder [Unknown]
  - Condition aggravated [Unknown]
  - Arthralgia [Unknown]
  - Malaise [Unknown]
